FAERS Safety Report 19467598 (Version 1)
Quarter: 2021Q2

REPORT INFORMATION
  Report Type: Spontaneous
  Country: US (occurrence: US)
  Receive Date: 20210628
  Receipt Date: 20210628
  Transmission Date: 20210717
  Serious: Yes (Death)
  Sender: FDA-Public Use
  Company Number: None

PATIENT
  Age: 83 Year
  Sex: Male
  Weight: 58.06 kg

DRUGS (3)
  1. CEFTRIAXONE (CEFTRIAXONE NA 1GM/VIL INJ) [Suspect]
     Active Substance: CEFTRIAXONE SODIUM
     Indication: ENDOCARDITIS
     Dosage: ?          OTHER ROUTE:IV?
  2. CEFTRIAXONE (CEFTRIAXONE NA 1GM/VIL INJ) [Suspect]
     Active Substance: CEFTRIAXONE SODIUM
     Indication: URINARY TRACT INFECTION
     Dosage: ?          OTHER ROUTE:IV?
  3. PIPERACILLIN/TAZOBACTAM [PIPERACILLIN NA 12GM/TAZOBACTAM NA 1.5GM/VIL [Suspect]
     Active Substance: PIPERACILLIN SODIUM\TAZOBACTAM SODIUM
     Dosage: ?          OTHER ROUTE:IV?
     Route: 042
     Dates: start: 20210503, end: 20210505

REACTIONS (3)
  - Dyspnoea [None]
  - Thrombocytopenia [None]
  - General physical health deterioration [None]

NARRATIVE: CASE EVENT DATE: 20210505
